FAERS Safety Report 15101782 (Version 4)
Quarter: 2018Q3

REPORT INFORMATION
  Report Type: Spontaneous
  Country: US (occurrence: US)
  Receive Date: 20180703
  Receipt Date: 20180828
  Transmission Date: 20181010
  Serious: Yes (Hospitalization)
  Sender: FDA-Public Use
  Company Number: US-ASTRAZENECA-2018SE84391

PATIENT
  Age: 30049 Day
  Sex: Female
  Weight: 52.6 kg

DRUGS (2)
  1. TUDORZA PRESSAIR [Suspect]
     Active Substance: ACLIDINIUM BROMIDE
     Indication: CHRONIC OBSTRUCTIVE PULMONARY DISEASE
     Route: 055
     Dates: start: 20150101, end: 20180531
  2. BREO ELLIPTA [Concomitant]
     Active Substance: FLUTICASONE FUROATE\VILANTEROL TRIFENATATE
     Indication: CHRONIC OBSTRUCTIVE PULMONARY DISEASE
     Dates: start: 20180801

REACTIONS (10)
  - Fall [Not Recovered/Not Resolved]
  - Pneumonia [Unknown]
  - Underdose [Not Recovered/Not Resolved]
  - Femur fracture [Unknown]
  - Drug ineffective [Unknown]
  - Device malfunction [Unknown]
  - Upper limb fracture [Unknown]
  - Device issue [Unknown]
  - Frustration tolerance decreased [Not Recovered/Not Resolved]
  - Intentional device misuse [Unknown]

NARRATIVE: CASE EVENT DATE: 20180206
